FAERS Safety Report 8664434 (Version 3)
Quarter: 2012Q4

REPORT INFORMATION
  Report Type: Spontaneous
  Country: UA (occurrence: None)
  Receive Date: 20120627
  Receipt Date: 20120814
  Transmission Date: 20130627
  Serious: Yes (Other)
  Sender: FDA-Public Use
  Company Number: KAD201206-000344

PATIENT
  Age: 35 Year
  Sex: Female

DRUGS (5)
  1. RIBAVIRIN [Suspect]
  2. RIBAVIRIN [Suspect]
     Dates: start: 20111206
  3. INTERFERON ALFACON-1 [Suspect]
  4. INTERFERON ALFACON-1 [Suspect]
     Dates: start: 20111206
  5. URSOFALK (250 MICROGRAM) [Concomitant]

REACTIONS (4)
  - Nervous system disorder [None]
  - Depression [None]
  - Dysarthria [None]
  - Hypoaesthesia [None]
